FAERS Safety Report 4602474-X (Version None)
Quarter: 2005Q1

REPORT INFORMATION
  Report Type: 
  Country: None (occurrence: None)
  Receive Date: 20050309
  Receipt Date: 20050228
  Transmission Date: 20050727
  Serious: Yes (Other)
  Sender: FDA-Public Use
  Company Number: 200511985GDDC

PATIENT
  Sex: Male

DRUGS (1)
  1. TELFAST [Suspect]
     Indication: RASH PRURITIC
     Route: 048
     Dates: start: 20050226, end: 20050228

REACTIONS (1)
  - JAUNDICE [None]
